FAERS Safety Report 4931151-0 (Version None)
Quarter: 2006Q1

REPORT INFORMATION
  Report Type: 
  Country: None (occurrence: None)
  Receive Date: 20060201
  Receipt Date: 20051123
  Transmission Date: 20060701
  Serious: No
  Sender: FDA-Public Use
  Company Number: 2005PV004936

PATIENT
  Age: 62 Year
  Sex: Female
  Weight: 141.0687 kg

DRUGS (3)
  1. BYETTA [Suspect]
     Indication: DIABETES MELLITUS NON-INSULIN-DEPENDENT
     Dosage: 5 MCG; BID; SC
     Route: 058
     Dates: start: 20050101, end: 20050101
  2. AMARYL [Concomitant]
  3. ACTOS [Concomitant]

REACTIONS (6)
  - DYSGEUSIA [None]
  - DYSPEPSIA [None]
  - EPIGASTRIC DISCOMFORT [None]
  - GASTRITIS [None]
  - NAUSEA [None]
  - VOMITING [None]
